FAERS Safety Report 20509403 (Version 1)
Quarter: 2022Q1

REPORT INFORMATION
  Report Type: Spontaneous
  Country: CA (occurrence: CA)
  Receive Date: 20220223
  Receipt Date: 20220223
  Transmission Date: 20220423
  Serious: Yes (Life-Threatening, Hospitalization, Other)
  Sender: FDA-Public Use
  Company Number: CA-AUROBINDO-AUR-APL-2022-005170

PATIENT
  Age: 66 Year
  Sex: Male

DRUGS (11)
  1. TOPIRAMATE [Suspect]
     Active Substance: TOPIRAMATE
     Indication: Migraine prophylaxis
     Dosage: UNK UNK, TWO TIMES A DAY
     Route: 048
  2. TOPIRAMATE [Suspect]
     Active Substance: TOPIRAMATE
     Dosage: 12.5 MILLIGRAM, TWO TIMES A DAY
     Route: 048
  3. TOPIRAMATE [Suspect]
     Active Substance: TOPIRAMATE
     Dosage: 50 MILLIGRAM, TWO TIMES A DAY
     Route: 048
  4. ATORVASTATIN [Concomitant]
     Active Substance: ATORVASTATIN
     Indication: Product used for unknown indication
     Dosage: UNK
     Route: 065
  5. CELECOXIB [Concomitant]
     Active Substance: CELECOXIB
     Indication: Product used for unknown indication
     Dosage: UNK
     Route: 065
  6. DULOXETINE HYDROCHLORIDE [Concomitant]
     Active Substance: DULOXETINE HYDROCHLORIDE
     Indication: Product used for unknown indication
     Dosage: UNK
     Route: 048
  7. ELETRIPTAN [Concomitant]
     Active Substance: ELETRIPTAN
     Indication: Product used for unknown indication
     Dosage: UNK
     Route: 065
  8. ESOMEPRAZOLE [Concomitant]
     Active Substance: ESOMEPRAZOLE
     Indication: Product used for unknown indication
     Dosage: UNK
     Route: 065
  9. LORAZEPAM [Concomitant]
     Active Substance: LORAZEPAM
     Indication: Product used for unknown indication
     Dosage: UNK
     Route: 065
  10. SILDENAFIL [Concomitant]
     Active Substance: SILDENAFIL
     Indication: Product used for unknown indication
     Dosage: UNK
     Route: 065
  11. ZOPICLONE [Concomitant]
     Active Substance: ZOPICLONE
     Indication: Product used for unknown indication
     Dosage: UNK
     Route: 065

REACTIONS (5)
  - Suicide attempt [Unknown]
  - Abnormal behaviour [Unknown]
  - Euphoric mood [Unknown]
  - Hallucination, auditory [Unknown]
  - Suicidal ideation [Unknown]
